APPROVED DRUG PRODUCT: CELLCEPT
Active Ingredient: MYCOPHENOLATE MOFETIL HYDROCHLORIDE
Strength: 500MG/VIAL
Dosage Form/Route: INJECTABLE;INJECTION
Application: N050758 | Product #001 | TE Code: AP
Applicant: ROCHE PALO ALTO LLC
Approved: Aug 12, 1998 | RLD: Yes | RS: Yes | Type: RX